FAERS Safety Report 10384908 (Version 5)
Quarter: 2014Q3

REPORT INFORMATION
  Report Type: Report from Study
  Country: US (occurrence: US)
  Receive Date: 20140814
  Receipt Date: 20140925
  Transmission Date: 20150326
  Serious: Yes (Hospitalization)
  Sender: FDA-Public Use
  Company Number: US-SA-2014SA034013

PATIENT
  Age: 47 Year
  Sex: Female

DRUGS (6)
  1. AUBAGIO [Suspect]
     Active Substance: TERIFLUNOMIDE
     Indication: MULTIPLE SCLEROSIS
     Route: 048
     Dates: start: 20140120
  2. AUBAGIO [Suspect]
     Active Substance: TERIFLUNOMIDE
     Indication: MULTIPLE SCLEROSIS
     Route: 048
     Dates: start: 20140221, end: 201408
  3. TECFIDERA [Concomitant]
     Active Substance: DIMETHYL FUMARATE
     Indication: PRURITUS
  4. COPAXONE [Concomitant]
     Active Substance: GLATIRAMER ACETATE
     Indication: RASH
     Dosage: SHOT
  5. TECFIDERA [Concomitant]
     Active Substance: DIMETHYL FUMARATE
     Indication: RASH
  6. REBIF [Concomitant]
     Active Substance: INTERFERON BETA-1A
     Indication: RASH
     Dosage: SHOT

REACTIONS (11)
  - Headache [Unknown]
  - Rash [Unknown]
  - Stress [Unknown]
  - Dysphonia [Unknown]
  - Hypoaesthesia [Unknown]
  - Weight decreased [Unknown]
  - Alopecia [Recovered/Resolved]
  - Pruritus [Unknown]
  - Condition aggravated [Unknown]
  - Blood pressure increased [Unknown]
  - Urticaria [Unknown]

NARRATIVE: CASE EVENT DATE: 20140126
